FAERS Safety Report 7092628-8 (Version None)
Quarter: 2010Q4

REPORT INFORMATION
  Report Type: 
  Country: None (occurrence: None)
  Receive Date: 20101110
  Receipt Date: 20101028
  Transmission Date: 20110411
  Serious: Yes (Hospitalization, Other)
  Sender: FDA-Public Use
  Company Number: US-ASTRAZENECA-2009SE10875

PATIENT
  Age: 25663 Day
  Sex: Male
  Weight: 75 kg

DRUGS (11)
  1. LISINOPRIL [Suspect]
     Route: 048
     Dates: end: 20090626
  2. METOPROLOL TARTRATE [Suspect]
     Dates: end: 20090626
  3. FUROSEMIDE [Interacting]
     Indication: CARDIAC FAILURE
     Route: 048
     Dates: start: 20080201, end: 20090625
  4. EPLERENONE [Interacting]
     Indication: CARDIAC FAILURE
     Route: 048
     Dates: start: 20081006, end: 20090625
  5. ISOSORBIDE MONONITRATE [Concomitant]
  6. VALSARTAN [Concomitant]
  7. ACETYLSALICYLIC ACID [Concomitant]
  8. THYRAX [Concomitant]
  9. METFORMIN [Concomitant]
  10. SPIRIVA [Concomitant]
  11. EFFEXOR [Concomitant]

REACTIONS (4)
  - CARDIAC FAILURE [None]
  - DRUG INTERACTION [None]
  - MALAISE [None]
  - RENAL IMPAIRMENT [None]
